FAERS Safety Report 20892878 (Version 1)
Quarter: 2022Q2

REPORT INFORMATION
  Report Type: Spontaneous
  Country: BR (occurrence: BR)
  Receive Date: 20220531
  Receipt Date: 20220531
  Transmission Date: 20220721
  Serious: Yes (Other)
  Sender: FDA-Public Use
  Company Number: BR-SA-SAC20220526001290

PATIENT
  Age: 60 Year
  Sex: Male

DRUGS (1)
  1. APIDRA SOLOSTAR [Suspect]
     Active Substance: INSULIN GLULISINE
     Indication: Diabetes mellitus
     Dosage: 18 IU IN THE MORNING, 16 IN THE AFTERNOON AND 16 IN THE EVENING

REACTIONS (3)
  - Cataract [Unknown]
  - Eye disorder [Unknown]
  - Product storage error [Unknown]
